FAERS Safety Report 10602606 (Version 3)
Quarter: 2015Q1

REPORT INFORMATION
  Report Type: Spontaneous
  Country: US (occurrence: US)
  Receive Date: 20141124
  Receipt Date: 20150126
  Transmission Date: 20150720
  Serious: Yes (Hospitalization)
  Sender: FDA-Public Use
  Company Number: US-UNITED THERAPEUTICS-UNT-2014-011172

PATIENT
  Age: 21 Year
  Sex: Female
  Weight: 45.81 kg

DRUGS (2)
  1. REMODULIN [Suspect]
     Active Substance: TREPROSTINIL
     Dosage: 0.380 ?G/KG, CONTINUING
     Route: 041
     Dates: start: 20061101
  2. REMODULIN [Suspect]
     Active Substance: TREPROSTINIL
     Indication: PULMONARY ARTERIAL HYPERTENSION
     Dosage: 0.37 ?G/KG, CONTINUING
     Route: 041
     Dates: start: 20061004

REACTIONS (4)
  - Diarrhoea [Recovered/Resolved]
  - Gastroenteritis [Unknown]
  - Infection [Unknown]
  - Pyrexia [Recovered/Resolved]

NARRATIVE: CASE EVENT DATE: 201411
